FAERS Safety Report 18944741 (Version 2)
Quarter: 2021Q2

REPORT INFORMATION
  Report Type: Spontaneous
  Country: US (occurrence: US)
  Receive Date: 20210226
  Receipt Date: 20210605
  Transmission Date: 20210717
  Serious: Yes (Life-Threatening, Hospitalization, Other)
  Sender: FDA-Public Use
  Company Number: US-DRREDDYS-USA/USA/21/0132169

PATIENT
  Age: 62 Year
  Sex: Female
  Weight: 66.7 kg

DRUGS (4)
  1. HEPARIN SODIUM. [Suspect]
     Active Substance: HEPARIN SODIUM
     Dosage: THREE HEPARIN BOLUSES AT 40U/KG
  2. HEPARIN SODIUM. [Suspect]
     Active Substance: HEPARIN SODIUM
     Dosage: DOSED BETWEEN 16U/KG/HR?26U/KG/HR FOR 3 DAYS
  3. HEPARIN SODIUM. [Suspect]
     Active Substance: HEPARIN SODIUM
     Indication: PRODUCT USED FOR UNKNOWN INDICATION
     Dosage: DOSED BETWEEN 16U/KG/HR?26U/KG/HR FOR 3 DAYS
  4. ACETYLSALICYLIC ACID [Concomitant]
     Active Substance: ASPIRIN
     Indication: PRODUCT USED FOR UNKNOWN INDICATION
     Dosage: LOW DOSE

REACTIONS (10)
  - Cerebral infarction [Unknown]
  - Splenic infarction [Unknown]
  - Splenic haemorrhage [Unknown]
  - Atrial fibrillation [Recovering/Resolving]
  - Heparin-induced thrombocytopenia [None]
  - Brachiocephalic vein thrombosis [Unknown]
  - Haemoperitoneum [Recovering/Resolving]
  - Heparin-induced thrombocytopenia [Recovering/Resolving]
  - Brachiocephalic vein thrombosis [Recovered/Resolved]
  - Splenic vein thrombosis [Unknown]
